FAERS Safety Report 25800089 (Version 1)
Quarter: 2025Q3

REPORT INFORMATION
  Report Type: Spontaneous
  Country: US (occurrence: US)
  Receive Date: 20250914
  Receipt Date: 20250914
  Transmission Date: 20251020
  Serious: No
  Sender: ROCHE
  Company Number: US-ROCHE-10000384058

PATIENT
  Age: 33 Year
  Sex: Female

DRUGS (6)
  1. OCREVUS ZUNOVO [Suspect]
     Active Substance: HYALURONIDASE-OCSQ\OCRELIZUMAB
     Indication: Multiple sclerosis
     Route: 058
     Dates: start: 202505
  2. OCREVUS [Suspect]
     Active Substance: OCRELIZUMAB
     Indication: Multiple sclerosis
     Route: 042
     Dates: start: 20231031, end: 202505
  3. ACETAMINOPHEN [Concomitant]
     Active Substance: ACETAMINOPHEN
  4. LORATADINE [Concomitant]
     Active Substance: LORATADINE
  5. DEXAMETHASONE [Concomitant]
     Active Substance: DEXAMETHASONE
  6. MONTELUKAST [Concomitant]
     Active Substance: MONTELUKAST

REACTIONS (3)
  - Contusion [Unknown]
  - Swelling [Unknown]
  - Pain [Unknown]

NARRATIVE: CASE EVENT DATE: 20250501
